FAERS Safety Report 9054096 (Version 1)
Quarter: 2013Q1

REPORT INFORMATION
  Report Type: Spontaneous
  Country: US (occurrence: US)
  Receive Date: 20130208
  Receipt Date: 20130208
  Transmission Date: 20140127
  Serious: Yes (Hospitalization)
  Sender: FDA-Public Use
  Company Number: US-BAYER-2013-015518

PATIENT
  Age: 42 Year
  Sex: Female

DRUGS (4)
  1. YASMIN [Suspect]
     Indication: DYSFUNCTIONAL UTERINE BLEEDING
  2. DILAUDID [Concomitant]
     Indication: DISCOMFORT
     Route: 042
  3. MORPHINE [Concomitant]
     Route: 042
  4. VICODIN [Concomitant]

REACTIONS (1)
  - Pulmonary embolism [Recovered/Resolved]
